FAERS Safety Report 8854233 (Version 1)
Quarter: 2012Q4

REPORT INFORMATION
  Report Type: 
  Country: US (occurrence: US)
  Receive Date: 20121022
  Receipt Date: 20121022
  Transmission Date: 20130627
  Serious: Yes (Life-Threatening, Hospitalization)
  Sender: FDA-Public Use
  Company Number: US-SANOFI-AVENTIS-2012SA075150

PATIENT
  Age: 68 Year
  Sex: Male
  Weight: 103 kg

DRUGS (11)
  1. PLAVIX [Suspect]
     Indication: CORONARY ARTERIAL STENT INSERTION
     Route: 048
     Dates: end: 2012
  2. ASPIRIN [Suspect]
     Indication: CORONARY ARTERIAL STENT INSERTION
     Route: 065
     Dates: end: 2012
  3. AVANDIA [Suspect]
     Indication: TYPE II DIABETES MELLITUS
     Route: 048
     Dates: start: 1999, end: 201209
  4. NSAID^S [Suspect]
     Route: 065
  5. METFORMIN [Concomitant]
  6. GABAPENTIN [Concomitant]
  7. ROSUVASTATIN CALCIUM [Concomitant]
  8. JANUVIA [Concomitant]
  9. GLIMEPIRIDE [Concomitant]
  10. PROTONIX [Concomitant]
  11. TESTOSTERONE [Concomitant]

REACTIONS (4)
  - Ejection fraction decreased [Not Recovered/Not Resolved]
  - Cardiac failure congestive [Not Recovered/Not Resolved]
  - Gastrointestinal haemorrhage [Not Recovered/Not Resolved]
  - Myocardial infarction [Not Recovered/Not Resolved]
